FAERS Safety Report 6202677-7 (Version None)
Quarter: 2009Q2

REPORT INFORMATION
  Report Type: 
  Country: None (occurrence: None)
  Receive Date: 20090519
  Receipt Date: 20090513
  Transmission Date: 20091009
  Serious: Yes (Disabling, Other)
  Sender: FDA-Public Use
  Company Number: ADE2009-0608

PATIENT
  Age: 51 Year
  Sex: Male

DRUGS (6)
  1. PAROXETINE HCL [Suspect]
     Indication: INSOMNIA
     Dosage: 20MG-30MG, ORAL
     Route: 048
     Dates: start: 20040806
  2. PAROXETINE HCL [Suspect]
     Indication: STRESS
     Dosage: 20MG-30MG, ORAL
     Route: 048
     Dates: start: 20040806
  3. DIAZEPAM [Concomitant]
  4. FLUPENTHIXOL [Concomitant]
  5. MELITRACEN HYDROCHLORIDE [Concomitant]
  6. TRAZODONE HCL [Concomitant]

REACTIONS (16)
  - ABNORMAL BEHAVIOUR [None]
  - ABNORMAL SLEEP-RELATED EVENT [None]
  - ACCIDENTAL OVERDOSE [None]
  - AGGRESSION [None]
  - ALCOHOL POISONING [None]
  - AMNESIA [None]
  - CONFUSIONAL STATE [None]
  - DEPRESSION [None]
  - FATIGUE [None]
  - HOMICIDAL IDEATION [None]
  - INSOMNIA [None]
  - IRRITABILITY [None]
  - LOSS OF CONSCIOUSNESS [None]
  - MOOD ALTERED [None]
  - MOVEMENT DISORDER [None]
  - NIGHTMARE [None]
